FAERS Safety Report 9316247 (Version 1)
Quarter: 2013Q2

REPORT INFORMATION
  Report Type: Spontaneous
  Country: US (occurrence: None)
  Receive Date: 20130522
  Receipt Date: 20130522
  Transmission Date: 20140414
  Serious: Yes (Other)
  Sender: FDA-Public Use
  Company Number: ADR-2013-00863

PATIENT
  Sex: Female

DRUGS (3)
  1. BACLOFEN [Suspect]
  2. FENTANYL [Concomitant]
  3. CLONIDINE [Concomitant]

REACTIONS (1)
  - Drug withdrawal syndrome [None]
